FAERS Safety Report 4712270-0 (Version None)
Quarter: 2005Q3

REPORT INFORMATION
  Report Type: 
  Country: None (occurrence: None)
  Receive Date: 20050712
  Receipt Date: 20050629
  Transmission Date: 20060218
  Serious: Yes (Death)
  Sender: FDA-Public Use
  Company Number: B0386490A

PATIENT
  Age: 19 Year
  Sex: Male

DRUGS (1)
  1. PAXIL [Suspect]
     Indication: INTENTIONAL SELF-INJURY

REACTIONS (5)
  - ANTIDEPRESSANT DRUG LEVEL ABOVE THERAPEUTIC [None]
  - BLOOD BILIRUBIN INCREASED [None]
  - DEPRESSED LEVEL OF CONSCIOUSNESS [None]
  - DRUG DOSE OMISSION [None]
  - INJURY ASPHYXIATION [None]
